FAERS Safety Report 10236108 (Version 1)
Quarter: 2014Q2

REPORT INFORMATION
  Report Type: Spontaneous
  Country: US (occurrence: US)
  Receive Date: 20140613
  Receipt Date: 20140613
  Transmission Date: 20141212
  Serious: No
  Sender: FDA-Public Use
  Company Number: US-JNJFOC-20140600032

PATIENT
  Age: 76 Year
  Sex: Female
  Weight: 113.4 kg

DRUGS (7)
  1. SANDOZ FENTANYL TRANSDERMAL SYSTEM [Suspect]
     Indication: PAIN
     Route: 062
     Dates: start: 20140528
  2. PLAVIX [Concomitant]
     Indication: PRODUCT USED FOR UNKNOWN INDICATION
     Route: 048
     Dates: start: 201401
  3. AMLODIPINE BESYLATE [Concomitant]
     Indication: BLOOD PRESSURE
     Route: 048
     Dates: start: 2012
  4. METOPROLOL TARTRATE [Concomitant]
     Indication: BLOOD PRESSURE
     Route: 048
  5. LISINOPRIL [Concomitant]
     Indication: FLUID RETENTION
     Route: 048
     Dates: start: 2012
  6. PANTOPRAZOLE [Concomitant]
     Indication: GASTRIC DISORDER
     Route: 048
     Dates: start: 2012
  7. ISOSORBIDE MONONITRATE [Concomitant]
     Indication: CARDIAC DISORDER
     Route: 048

REACTIONS (4)
  - Pain [Not Recovered/Not Resolved]
  - Product adhesion issue [Unknown]
  - Product quality issue [Unknown]
  - Inappropriate schedule of drug administration [Unknown]
